FAERS Safety Report 8443454 (Version 2)
Quarter: 2012Q4

REPORT INFORMATION
  Report Type: 
  Country: BR (occurrence: BR)
  Receive Date: 20120306
  Receipt Date: 20121002
  Transmission Date: 20130627
  Serious: Yes (Death, Hospitalization)
  Sender: FDA-Public Use
  Company Number: BR-ASTRAZENECA-2012SE14105

PATIENT
  Age: 83 Year
  Sex: Female

DRUGS (2)
  1. CRESTOR [Suspect]
     Route: 048
  2. CRESTOR [Suspect]
     Route: 048

REACTIONS (5)
  - Cardiac procedure complication [Fatal]
  - Renal impairment [Unknown]
  - Lung disorder [Unknown]
  - Fatigue [Unknown]
  - Blood cholesterol increased [Unknown]
